FAERS Safety Report 5028627-7 (Version None)
Quarter: 2006Q2

REPORT INFORMATION
  Report Type: 
  Country: None (occurrence: None)
  Receive Date: 20060619
  Receipt Date: 20060607
  Transmission Date: 20061013
  Serious: Yes (Hospitalization)
  Sender: FDA-Public Use
  Company Number: PHRM2006FR01749

PATIENT
  Age: 28 Year
  Sex: Female

DRUGS (6)
  1. SPECIAFOLDINE [Concomitant]
     Indication: ANAEMIA
     Dosage: 5 MG, BID
     Route: 048
     Dates: end: 20060227
  2. TARDYFERON [Concomitant]
     Indication: ANAEMIA
     Dosage: 80 MG, BID
     Route: 048
     Dates: end: 20060227
  3. PANTOPRAZOLE SODIUM [Concomitant]
     Dosage: 40 MG/DAY
     Route: 048
  4. TRANSIPEG [Concomitant]
     Indication: CONSTIPATION
     Dosage: 5.9 G/DAY
     Route: 048
  5. TEGRETOL [Suspect]
     Indication: EPILEPSY
     Dosage: 200 MG, BID
     Route: 048
     Dates: end: 20060227
  6. LIORESAL [Suspect]
     Indication: QUADRIPLEGIA
     Dates: start: 20050215

REACTIONS (17)
  - ANTICONVULSANT DRUG LEVEL ABOVE THERAPEUTIC [None]
  - ARTERIOPATHIC DISEASE [None]
  - C-REACTIVE PROTEIN INCREASED [None]
  - CHOKING [None]
  - CONDITION AGGRAVATED [None]
  - DYSPHAGIA [None]
  - DYSPNOEA [None]
  - GENERAL NUTRITION DISORDER [None]
  - INFLAMMATION [None]
  - INTERCOSTAL RETRACTION [None]
  - LEGIONELLA SEROLOGY POSITIVE [None]
  - LUNG DISORDER [None]
  - MUSCLE SPASTICITY [None]
  - PNEUMONIA ASPIRATION [None]
  - PRODUCTIVE COUGH [None]
  - RED BLOOD CELL SEDIMENTATION RATE INCREASED [None]
  - SOMNOLENCE [None]
